FAERS Safety Report 7669457-7 (Version None)
Quarter: 2011Q3

REPORT INFORMATION
  Report Type: 
  Country: None (occurrence: None)
  Receive Date: 20110803
  Receipt Date: 20110721
  Transmission Date: 20111222
  Serious: Yes (Hospitalization, Other)
  Sender: FDA-Public Use
  Company Number: AUR-APL-2011-04464

PATIENT
  Age: 90 Year
  Sex: Male

DRUGS (5)
  1. ASPIRIN [Concomitant]
  2. PAROXETINE HCL [Suspect]
     Indication: DEPRESSION
     Dosage: 20 MG (20 MG, EACH MORNING)
  3. LISINOPRIL [Concomitant]
  4. TORSEMIDE [Concomitant]
  5. AMLODIPINE BESYLATE [Concomitant]

REACTIONS (4)
  - HEART RATE DECREASED [None]
  - DRUG LEVEL INCREASED [None]
  - DRUG INTERACTION [None]
  - CARDIAC FAILURE [None]
